FAERS Safety Report 19855299 (Version 2)
Quarter: 2021Q3

REPORT INFORMATION
  Report Type: Report from Study
  Country: US (occurrence: US)
  Receive Date: 20210920
  Receipt Date: 20210923
  Transmission Date: 20211014
  Serious: Yes (Other)
  Sender: FDA-Public Use
  Company Number: US-SA-2021SA304382

PATIENT
  Age: 65 Year
  Sex: Female

DRUGS (2)
  1. NO STUDY DRUG GIVEN MKT [Suspect]
     Active Substance: UNSPECIFIED INGREDIENT
     Dosage: UNK
  2. THYMOGLOBULIN [Suspect]
     Active Substance: LAPINE T-LYMPHOCYTE IMMUNE GLOBULIN
     Indication: PROPHYLAXIS AGAINST TRANSPLANT REJECTION
     Dosage: 0.75?1 .5MG/KG X 4 TIMES
     Route: 041

REACTIONS (3)
  - Delayed graft function [Unknown]
  - Neutropenia [Unknown]
  - Thrombocytopenia [Unknown]
